FAERS Safety Report 17326182 (Version 2)
Quarter: 2020Q1

REPORT INFORMATION
  Report Type: Spontaneous
  Country: US (occurrence: US)
  Receive Date: 20200127
  Receipt Date: 20200220
  Transmission Date: 20200409
  Serious: No
  Sender: FDA-Public Use
  Company Number: US-ASTRAZENECA-2020SE10275

PATIENT
  Age: 25618 Day
  Sex: Male
  Weight: 89.3 kg

DRUGS (4)
  1. JANUVIA [Concomitant]
     Active Substance: SITAGLIPTIN PHOSPHATE
     Indication: DIABETES MELLITUS
  2. METFORMIN [Concomitant]
     Active Substance: METFORMIN HYDROCHLORIDE
     Indication: DIABETES MELLITUS
  3. LINZESS [Concomitant]
     Active Substance: LINACLOTIDE
  4. BYDUREON BCISE [Suspect]
     Active Substance: EXENATIDE
     Indication: TYPE 2 DIABETES MELLITUS
     Route: 058
     Dates: start: 20180615

REACTIONS (11)
  - Nasopharyngitis [Unknown]
  - Drug delivery system malfunction [Unknown]
  - Decreased appetite [Unknown]
  - Injection site bruising [Not Recovered/Not Resolved]
  - Needle issue [Unknown]
  - Injection site nodule [Recovering/Resolving]
  - Device leakage [Unknown]
  - Weight decreased [Unknown]
  - Injection site pain [Unknown]
  - Weight increased [Unknown]
  - Incorrect dose administered by device [Unknown]

NARRATIVE: CASE EVENT DATE: 20200117
